FAERS Safety Report 20575433 (Version 3)
Quarter: 2023Q2

REPORT INFORMATION
  Report Type: Spontaneous
  Country: US (occurrence: US)
  Receive Date: 20220310
  Receipt Date: 20230531
  Transmission Date: 20230722
  Serious: Yes (Other)
  Sender: FDA-Public Use
  Company Number: US-JNJFOC-20220315983

PATIENT
  Age: 69 Year
  Sex: Female

DRUGS (8)
  1. ELMIRON [Suspect]
     Active Substance: PENTOSAN POLYSULFATE SODIUM
     Indication: Cystitis interstitial
     Route: 048
     Dates: start: 200901, end: 201911
  2. ELMIRON [Suspect]
     Active Substance: PENTOSAN POLYSULFATE SODIUM
     Route: 048
     Dates: end: 202006
  3. PHENAZOPYRIDINE [Concomitant]
     Active Substance: PHENAZOPYRIDINE
     Indication: Bladder disorder
     Dates: start: 20110210, end: 20161017
  4. LEVOFLOXACIN [Concomitant]
     Active Substance: LEVOFLOXACIN
     Indication: Infection
     Dates: start: 20110809, end: 20151116
  5. NITROFURANTOIN [Concomitant]
     Active Substance: NITROFURANTOIN
     Indication: Urinary tract infection
     Dates: start: 20111007, end: 20161017
  6. SULFAMETHOXAZOLE [Concomitant]
     Active Substance: SULFAMETHOXAZOLE
     Indication: Infection
     Dates: start: 20101129, end: 20161012
  7. CHLOROTHIAZIDE [Concomitant]
     Active Substance: CHLOROTHIAZIDE
     Indication: Hypertension
     Dates: start: 20150319, end: 20151224
  8. CIPROFLOXACIN [Concomitant]
     Active Substance: CIPROFLOXACIN
     Indication: Infection
     Dates: start: 20110701, end: 20160531

REACTIONS (2)
  - Age-related macular degeneration [Not Recovered/Not Resolved]
  - Maculopathy [Unknown]

NARRATIVE: CASE EVENT DATE: 20150601
